FAERS Safety Report 13759536 (Version 1)
Quarter: 2017Q3

REPORT INFORMATION
  Report Type: Spontaneous
  Country: US (occurrence: US)
  Receive Date: 20170717
  Receipt Date: 20170717
  Transmission Date: 20171127
  Serious: No
  Sender: FDA-Public Use
  Company Number: None

PATIENT
  Age: 80 Year
  Sex: Male
  Weight: 88.6 kg

DRUGS (3)
  1. DENOSUMAB (XGEVA) [Concomitant]
  2. LUPRON [Suspect]
     Active Substance: LEUPROLIDE ACETATE
     Indication: METASTASES TO BONE
     Dosage: 30 MG EVERY 4 MONTHS; INTRAMUSCULAR?
     Route: 030
     Dates: start: 20120605, end: 20170712
  3. LUPRON [Suspect]
     Active Substance: LEUPROLIDE ACETATE
     Indication: PROSTATE CANCER METASTATIC
     Dosage: 30 MG EVERY 4 MONTHS; INTRAMUSCULAR?
     Route: 030
     Dates: start: 20120605, end: 20170712

REACTIONS (3)
  - Gait inability [None]
  - Vomiting [None]
  - Pain in extremity [None]

NARRATIVE: CASE EVENT DATE: 20170712
